FAERS Safety Report 13247115 (Version 1)
Quarter: 2017Q1

REPORT INFORMATION
  Report Type: Spontaneous
  Country: GB (occurrence: GB)
  Receive Date: 20170217
  Receipt Date: 20170217
  Transmission Date: 20170428
  Serious: Yes (Life-Threatening)
  Sender: FDA-Public Use
  Company Number: GB-009507513-1702GBR004661

PATIENT
  Age: 58 Year
  Sex: Male
  Weight: 59 kg

DRUGS (8)
  1. SUGAMMADEX SODIUM [Suspect]
     Active Substance: SUGAMMADEX SODIUM
     Indication: NEUROMUSCULAR BLOCKADE REVERSAL
     Dosage: 200 MG, UNK
     Route: 042
     Dates: start: 20170111, end: 20170111
  2. VECURONIUM BROMIDE. [Concomitant]
     Active Substance: VECURONIUM BROMIDE
     Indication: GENERAL ANAESTHESIA
     Dosage: 6 MG, UNK
     Route: 042
     Dates: start: 20170111, end: 20170111
  3. DICLOFENAC [Concomitant]
     Active Substance: DICLOFENAC
     Dosage: 75 MG, UNK
     Route: 042
     Dates: start: 20170111, end: 20170111
  4. FENTANYL. [Concomitant]
     Active Substance: FENTANYL
     Indication: GENERAL ANAESTHESIA
     Dosage: 100 MICROGRAM, UNK
     Route: 042
     Dates: start: 20170111, end: 20170111
  5. GLYCOPYRROLATE. [Concomitant]
     Active Substance: GLYCOPYRROLATE
     Dosage: 500 MG, UNK
  6. PROPOFOL. [Concomitant]
     Active Substance: PROPOFOL
     Dosage: 150 MG, UNK
     Dates: start: 20170111, end: 20170111
  7. ACETAMINOPHEN. [Concomitant]
     Active Substance: ACETAMINOPHEN
     Indication: GENERAL ANAESTHESIA
     Dosage: 1 G, UNK
     Route: 042
     Dates: start: 20170111, end: 20170111
  8. NEOSTIGMINE METHYLSULFATE. [Concomitant]
     Active Substance: NEOSTIGMINE METHYLSULFATE
     Dosage: 250 MICROGRAM, UNK

REACTIONS (1)
  - Bronchospasm [Recovered/Resolved]

NARRATIVE: CASE EVENT DATE: 20170111
